FAERS Safety Report 8303487-7 (Version None)
Quarter: 2012Q2

REPORT INFORMATION
  Report Type: 
  Country: None (occurrence: None)
  Receive Date: 20120418
  Receipt Date: 20120412
  Transmission Date: 20120825
  Serious: Yes (Hospitalization)
  Sender: FDA-Public Use
  Company Number: ACO_29461_2012

PATIENT
  Age: 60 Year
  Sex: Female
  Weight: 71.1 kg

DRUGS (7)
  1. TIZANIDINE HCL [Concomitant]
  2. AVONEX [Suspect]
     Indication: MULTIPLE SCLEROSIS
     Dosage: 30 UG, WEEKLY, INTRAMUSCULAR
     Route: 030
     Dates: start: 20100201
  3. METHADONE HCL [Concomitant]
  4. SERTRALINE HYDROCHLORIDE [Concomitant]
  5. GABAPENTIN [Concomitant]
  6. AMPYRA [Suspect]
     Indication: PRODUCT USED FOR UNKNOWN INDICATION
     Dosage: 10 MG, Q 12 HRS, ORAL
     Route: 048
     Dates: start: 20110601
  7. DURAGESIC (PARACETAMOL) [Concomitant]

REACTIONS (7)
  - PNEUMONIA [None]
  - ABDOMINAL PAIN [None]
  - HEPATOMEGALY [None]
  - FLATULENCE [None]
  - PANCREATITIS [None]
  - SMALL INTESTINAL OBSTRUCTION [None]
  - RENAL FAILURE ACUTE [None]
